FAERS Safety Report 6759003-4 (Version None)
Quarter: 2010Q2

REPORT INFORMATION
  Report Type: 
  Country: None (occurrence: None)
  Receive Date: 20100607
  Receipt Date: 20100525
  Transmission Date: 20101027
  Serious: Yes (Hospitalization)
  Sender: FDA-Public Use
  Company Number: CA-JNJFOC-20100509780

PATIENT
  Age: 56 Year
  Sex: Female
  Weight: 51.71 kg

DRUGS (3)
  1. TYLENOL COLD ES DAYTIME TABLET [Suspect]
     Indication: SINUSITIS
     Dosage: FOR 3 DAYS
     Route: 048
  2. TYLENOL COLD ES NIGHTIME TABLET [Suspect]
     Indication: SINUSITIS
     Dosage: FOR 3 DAYS
     Route: 048
  3. GRAVOL TAB [Concomitant]

REACTIONS (5)
  - ERYTHEMA [None]
  - HYPERAESTHESIA [None]
  - HYPERSENSITIVITY [None]
  - PRURITUS [None]
  - SKIN DISCOLOURATION [None]
